FAERS Safety Report 8047262-X (Version None)
Quarter: 2012Q1

REPORT INFORMATION
  Report Type: 
  Country: None (occurrence: None)
  Receive Date: 20120116
  Receipt Date: 20120104
  Transmission Date: 20120608
  Serious: Yes (Hospitalization)
  Sender: FDA-Public Use
  Company Number: DE-ELI_LILLY_AND_COMPANY-DE201201000680

PATIENT
  Sex: Female

DRUGS (4)
  1. CALCIUM [Concomitant]
  2. VITAMIN D [Concomitant]
  3. FORTEO [Suspect]
     Indication: OSTEOPOROSIS
     Dosage: UNK
     Route: 058
     Dates: start: 20110113
  4. FORTEO [Suspect]
     Dosage: UNK, QOD
     Route: 058

REACTIONS (5)
  - DIZZINESS [None]
  - PAIN [None]
  - MEDICATION ERROR [None]
  - SPINAL FRACTURE [None]
  - NAUSEA [None]
